FAERS Safety Report 6400580-0 (Version None)
Quarter: 2009Q4

REPORT INFORMATION
  Report Type: 
  Country: None (occurrence: None)
  Receive Date: 20091014
  Receipt Date: 20091006
  Transmission Date: 20100525
  Serious: Yes (Other)
  Sender: FDA-Public Use
  Company Number: BE-PFIZER INC-2009279280

PATIENT

DRUGS (1)
  1. MEDROL [Suspect]
     Indication: RHEUMATOID ARTHRITIS
     Dosage: 4 MG, 1X/DAY, FOR THREE YEARS
     Route: 048
     Dates: start: 20060101

REACTIONS (2)
  - INFECTION [None]
  - LOCALISED INFECTION [None]
